FAERS Safety Report 10167929 (Version 1)
Quarter: 2014Q2

REPORT INFORMATION
  Report Type: Spontaneous
  Country: US (occurrence: US)
  Receive Date: 20140512
  Receipt Date: 20140512
  Transmission Date: 20141212
  Serious: Yes (Other)
  Sender: FDA-Public Use
  Company Number: US-GLAXOSMITHKLINE-A1071925A

PATIENT
  Age: 63 Year
  Sex: Female

DRUGS (2)
  1. AVANDIA [Suspect]
     Indication: TYPE 2 DIABETES MELLITUS
     Dosage: 8MG PER DAY
     Route: 048
     Dates: start: 200101, end: 20060927
  2. NO CONCURRENT MEDICATION [Concomitant]

REACTIONS (7)
  - Transient ischaemic attack [Recovering/Resolving]
  - Headache [Recovering/Resolving]
  - Swelling [Recovering/Resolving]
  - Weight increased [Recovering/Resolving]
  - Deep vein thrombosis [Recovering/Resolving]
  - Pharyngeal oedema [Recovering/Resolving]
  - Heart rate increased [Recovering/Resolving]
